FAERS Safety Report 19432839 (Version 1)
Quarter: 2021Q2

REPORT INFORMATION
  Report Type: Spontaneous
  Country: TW (occurrence: TW)
  Receive Date: 20210618
  Receipt Date: 20210618
  Transmission Date: 20210717
  Serious: Yes (Other)
  Sender: FDA-Public Use
  Company Number: TW-ALKEM LABORATORIES LIMITED-TW-ALKEM-2021-03456

PATIENT
  Age: 64 Year
  Sex: Female

DRUGS (2)
  1. RIFAPENTINE [Suspect]
     Active Substance: RIFAPENTINE
     Indication: TUBERCULOSIS
     Dosage: 900 MILLIGRAM
     Route: 065
  2. ISONIAZID. [Suspect]
     Active Substance: ISONIAZID
     Indication: TUBERCULOSIS
     Dosage: 900 MILLIGRAM
     Route: 065

REACTIONS (3)
  - Cold sweat [Unknown]
  - Abdominal pain upper [Unknown]
  - Fatigue [Unknown]
